FAERS Safety Report 15707620 (Version 2)
Quarter: 2018Q4

REPORT INFORMATION
  Report Type: Spontaneous
  Country: US (occurrence: US)
  Receive Date: 20181211
  Receipt Date: 20181230
  Transmission Date: 20190205
  Serious: No
  Sender: FDA-Public Use
  Company Number: US-ASTRAZENECA-2018SF49161

PATIENT
  Sex: Female
  Weight: 86.2 kg

DRUGS (2)
  1. FORXIGA [Suspect]
     Active Substance: DAPAGLIFLOZIN
     Indication: TYPE 2 DIABETES MELLITUS
     Dosage: DAILY
     Route: 048
  2. BYDUREON BCISE [Suspect]
     Active Substance: EXENATIDE
     Indication: TYPE 2 DIABETES MELLITUS
     Route: 058
     Dates: start: 2018

REACTIONS (7)
  - Glaucoma [Unknown]
  - Overweight [Unknown]
  - Hypertension [Unknown]
  - Circumstance or information capable of leading to medication error [Unknown]
  - Injection site mass [Unknown]
  - Device malfunction [Unknown]
  - Injection site pruritus [Unknown]
